FAERS Safety Report 8111821-6 (Version None)
Quarter: 2012Q1

REPORT INFORMATION
  Report Type: 
  Country: None (occurrence: None)
  Receive Date: 20120203
  Receipt Date: 20120127
  Transmission Date: 20120608
  Serious: Yes (Other)
  Sender: FDA-Public Use
  Company Number: US-PFIZER INC-2012027481

PATIENT
  Sex: Female

DRUGS (3)
  1. GLUCOTROL XL [Suspect]
     Dosage: UNK
  2. LIPITOR [Suspect]
     Dosage: UNK
  3. ACCUPRIL [Suspect]
     Dosage: UNK

REACTIONS (3)
  - DIABETES MELLITUS [None]
  - HYPERTENSION [None]
  - HEARING IMPAIRED [None]
